FAERS Safety Report 13632647 (Version 1)
Quarter: 2017Q2

REPORT INFORMATION
  Report Type: Spontaneous
  Country: US (occurrence: US)
  Receive Date: 20170531
  Receipt Date: 20170531
  Transmission Date: 20170830
  Serious: No
  Sender: FDA-Public Use
  Company Number: US-ASTELLAS-1470877

PATIENT
  Sex: Female

DRUGS (2)
  1. TARCEVA [Suspect]
     Active Substance: ERLOTINIB HYDROCHLORIDE
     Indication: LUNG NEOPLASM MALIGNANT
     Route: 048
     Dates: start: 20150912
  2. LEXAPRO [Concomitant]
     Active Substance: ESCITALOPRAM OXALATE

REACTIONS (11)
  - Alopecia [Unknown]
  - Glossodynia [Unknown]
  - Neoplasm progression [Unknown]
  - Stomatitis [Unknown]
  - Hypoaesthesia [Unknown]
  - Hair texture abnormal [Unknown]
  - Atrophic glossitis [Unknown]
  - Dysgeusia [Unknown]
  - Ageusia [Unknown]
  - Diarrhoea [Unknown]
  - Drug ineffective [Unknown]
